FAERS Safety Report 24139904 (Version 1)
Quarter: 2024Q3

REPORT INFORMATION
  Report Type: Spontaneous
  Country: US (occurrence: US)
  Receive Date: 20240726
  Receipt Date: 20240726
  Transmission Date: 20241017
  Serious: Yes (Hospitalization, Other)
  Sender: APOTEX
  Company Number: US-APOTEX-2024AP008622

PATIENT
  Age: 32 Year
  Sex: Female

DRUGS (1)
  1. BUPROPION [Suspect]
     Active Substance: BUPROPION
     Indication: Depression
     Dosage: UNK
     Route: 065

REACTIONS (8)
  - Intentional overdose [Unknown]
  - Ejection fraction decreased [Recovered/Resolved]
  - Electrocardiogram QT prolonged [Recovered/Resolved]
  - Ventricular tachycardia [Recovered/Resolved]
  - Cardiogenic shock [Recovered/Resolved]
  - Sinus tachycardia [Recovered/Resolved]
  - Mental status changes [Unknown]
  - Seizure [Unknown]
